FAERS Safety Report 7209072-2 (Version None)
Quarter: 2010Q4

REPORT INFORMATION
  Report Type: 
  Country: None (occurrence: None)
  Receive Date: 20101222
  Receipt Date: 20101213
  Transmission Date: 20110411
  Serious: Yes (Death, Hospitalization)
  Sender: FDA-Public Use
  Company Number: 2010MA005247

PATIENT
  Age: 52 Year
  Sex: Male

DRUGS (5)
  1. VENLAFAXINE HYDROCHLORIDE [Suspect]
     Indication: ANXIETY
     Dosage: 150 MG; QD;
     Dates: start: 20100115
  2. SERTRALINE HYDROCHLORIDE [Concomitant]
  3. CITALOPRAM [Concomitant]
  4. MIRTAZAPINE [Concomitant]
  5. VENLAFAXINE [Concomitant]

REACTIONS (4)
  - ACUTE CORONARY SYNDROME [None]
  - ACUTE MYOCARDIAL INFARCTION [None]
  - ARTERIOSCLEROSIS CORONARY ARTERY [None]
  - CHEST PAIN [None]
